FAERS Safety Report 8168985-8 (Version None)
Quarter: 2012Q1

REPORT INFORMATION
  Report Type: 
  Country: None (occurrence: None)
  Receive Date: 20120227
  Receipt Date: 20120219
  Transmission Date: 20120608
  Serious: No
  Sender: FDA-Public Use
  Company Number: US-BAYER-2012-017286

PATIENT
  Age: 50 Year
  Sex: Male
  Weight: 100 kg

DRUGS (3)
  1. ALEVE (CAPLET) [Suspect]
     Dosage: 2 TAB USED ONLY ONE TIME
     Route: 048
     Dates: start: 20120219
  2. FLOMAX [Concomitant]
  3. MULTI-VITAMIN [Concomitant]

REACTIONS (3)
  - DYSPEPSIA [None]
  - DYSPHAGIA [None]
  - GENERALISED ERYTHEMA [None]
